FAERS Safety Report 5628935-2 (Version None)
Quarter: 2008Q1

REPORT INFORMATION
  Report Type: 
  Country: None (occurrence: None)
  Receive Date: 20080214
  Receipt Date: 20080204
  Transmission Date: 20080703
  Serious: Yes (Other)
  Sender: FDA-Public Use
  Company Number: 023448

PATIENT
  Age: 51 Year
  Sex: Female
  Weight: 93 kg

DRUGS (3)
  1. TRIAMTERENE + HYDROCHLOROTHIAZIDE(TRIAMTERENE, HYDROCHLOROTHIAZIDE) TA [Suspect]
     Indication: HYPERTENSION
     Dosage: 1 TABLET, BID, ORAL
     Route: 048
     Dates: start: 20050101
  2. LISINOPRIL [Suspect]
     Indication: HYPERTENSION
     Dosage: (2 - 3 TIMES PER WEEK), PRN,
     Dates: start: 20070401, end: 20070701
  3. PAXIL [Concomitant]

REACTIONS (6)
  - AMNESIA [None]
  - ANXIETY [None]
  - BLOOD PRESSURE DECREASED [None]
  - DIZZINESS [None]
  - DRUG INTERACTION [None]
  - PANIC ATTACK [None]
